FAERS Safety Report 5049812-4 (Version None)
Quarter: 2006Q3

REPORT INFORMATION
  Report Type: 
  Country: None (occurrence: None)
  Receive Date: 20060712
  Receipt Date: 20060710
  Transmission Date: 20061208
  Serious: Yes (Hospitalization)
  Sender: FDA-Public Use
  Company Number: FR-MERCK-0607FRA00016

PATIENT
  Age: 46 Year
  Sex: Male

DRUGS (1)
  1. PRIMAXIN [Suspect]
     Indication: URINARY TRACT INFECTION
     Route: 051
     Dates: start: 20060609, end: 20060609

REACTIONS (3)
  - ERYTHEMA [None]
  - FACE OEDEMA [None]
  - PHARYNGEAL OEDEMA [None]
